FAERS Safety Report 8785062 (Version 1)
Quarter: 2012Q4

REPORT INFORMATION
  Report Type: 
  Country: JP (occurrence: JP)
  Receive Date: 20120914
  Receipt Date: 20120914
  Transmission Date: 20130627
  Serious: Yes (Hospitalization, Other)
  Sender: FDA-Public Use
  Company Number: JP-009507513-2012SP012274

PATIENT

DRUGS (10)
  1. PEGINTERFERON ALFA-2B [Suspect]
     Indication: HEPATITIS C
     Dosage: 1.5 ?g/kg, QW
     Route: 058
     Dates: start: 20120221
  2. REBETOL [Suspect]
     Indication: HEPATITIS C
     Dosage: 600 mg, QD
     Route: 048
     Dates: start: 20120221
  3. REBETOL [Suspect]
     Dosage: 800 mg, qd
     Route: 048
  4. REBETOL [Suspect]
     Dosage: 600 mg, qd
     Route: 048
     Dates: end: 20120604
  5. REBETOL [Suspect]
     Dosage: 400 mg, qd
     Route: 048
     Dates: start: 20120605
  6. TELAVIC [Suspect]
     Indication: HEPATITIS C
     Dosage: 1500 mg, QD
     Route: 048
     Dates: start: 20120221, end: 20120224
  7. NEXIUM [Concomitant]
     Indication: GASTROOESOPHAGEAL REFLUX DISEASE
     Dosage: 20 mg, qd
     Route: 048
     Dates: start: 20120605
  8. MYSLEE [Concomitant]
     Indication: INSOMNIA
     Dosage: 5 mg, qd
     Route: 048
  9. LOXOPROFEN [Concomitant]
     Route: 048
  10. [COMPOSITION UNSPECIFIED] [Concomitant]
     Route: 048

REACTIONS (1)
  - Toxic skin eruption [Recovering/Resolving]
